FAERS Safety Report 18338245 (Version 1)
Quarter: 2020Q3

REPORT INFORMATION
  Report Type: Spontaneous
  Country: US (occurrence: US)
  Receive Date: 20200930
  Receipt Date: 20200930
  Transmission Date: 20201103
  Serious: Yes (Hospitalization)
  Sender: FDA-Public Use
  Company Number: None

PATIENT
  Age: 73 Year
  Sex: Male

DRUGS (1)
  1. LEVETIRACETAM (LEVETIRACETAM 500MG TAB) [Suspect]
     Active Substance: LEVETIRACETAM
     Indication: SEIZURE
     Route: 048
     Dates: start: 20191002, end: 20200901

REACTIONS (7)
  - Agitation [None]
  - Confusional state [None]
  - Delirium [None]
  - Behaviour disorder [None]
  - Hallucination, visual [None]
  - Depression [None]
  - Refusal of treatment by patient [None]

NARRATIVE: CASE EVENT DATE: 20200901
